FAERS Safety Report 6263108-4 (Version None)
Quarter: 2009Q3

REPORT INFORMATION
  Report Type: 
  Country: None (occurrence: None)
  Receive Date: 20090710
  Receipt Date: 20090702
  Transmission Date: 20100115
  Serious: Yes (Other)
  Sender: FDA-Public Use
  Company Number: US-CELGENEUS-163-20785-09070228

PATIENT
  Sex: Female

DRUGS (2)
  1. THALOMID [Suspect]
     Indication: MULTIPLE MYELOMA
     Route: 048
     Dates: start: 20061201, end: 20080201
  2. THALOMID [Suspect]
     Route: 048
     Dates: start: 20030601, end: 20061201

REACTIONS (2)
  - HAEMORRHAGE [None]
  - TRANSIENT ISCHAEMIC ATTACK [None]
